FAERS Safety Report 6113048-6 (Version None)
Quarter: 2009Q1

REPORT INFORMATION
  Report Type: 
  Country: None (occurrence: None)
  Receive Date: 20090312
  Receipt Date: 20090304
  Transmission Date: 20090719
  Serious: Yes (Hospitalization)
  Sender: FDA-Public Use
  Company Number: US-KINGPHARMUSA00001-K200900232

PATIENT
  Age: 76 Year
  Sex: Female

DRUGS (8)
  1. ALTACE [Suspect]
     Indication: HYPERTENSION
     Dosage: 2.5 MG, QD
     Route: 048
     Dates: start: 20060601
  2. TORSEMIDE [Suspect]
     Indication: HYPERTENSION
     Dosage: 10 MG, BID
     Route: 048
     Dates: start: 20080901, end: 20080908
  3. TORSEMIDE [Suspect]
     Dosage: UNK
     Dates: start: 20080916
  4. TRIMINEURIN [Suspect]
     Indication: SLEEP DISORDER
     Dosage: 100 MG, QD
     Route: 048
     Dates: start: 20060601, end: 20080908
  5. ASPIRIN [Concomitant]
     Indication: PROPHYLAXIS
     Dosage: 150 MG, UNK
     Route: 048
     Dates: start: 20060601
  6. BISOPROLOL [Concomitant]
     Indication: HYPERTENSION
     Dosage: 2.5 MG, BID
     Route: 048
     Dates: start: 20060601
  7. OMEP [Concomitant]
     Indication: MALLORY-WEISS SYNDROME
     Dosage: 20 MG, UNK
     Route: 048
     Dates: start: 20080810
  8. TIAPRIDEX [Concomitant]
     Indication: TARDIVE DYSKINESIA
     Dosage: 1.5 BID, 1 QD
     Route: 048
     Dates: start: 20060601

REACTIONS (4)
  - BACK PAIN [None]
  - DRUG INTERACTION [None]
  - FALL [None]
  - SYNCOPE [None]
